FAERS Safety Report 10685523 (Version 3)
Quarter: 2015Q4

REPORT INFORMATION
  Report Type: Spontaneous
  Country: US (occurrence: US)
  Receive Date: 20141231
  Receipt Date: 20151216
  Transmission Date: 20160304
  Serious: Yes (Hospitalization, Other)
  Sender: FDA-Public Use
  Company Number: US-BAYER-2014-191362

PATIENT
  Age: 23 Year
  Sex: Female
  Weight: 68 kg

DRUGS (3)
  1. MIRENA [Suspect]
     Active Substance: LEVONORGESTREL
     Indication: MENORRHAGIA
  2. TOPAMAX [Concomitant]
     Active Substance: TOPIRAMATE
     Dosage: UNK
     Dates: start: 2010
  3. MIRENA [Suspect]
     Active Substance: LEVONORGESTREL
     Indication: CONTRACEPTION
     Dosage: 20 MCG/24HR, CONT
     Route: 015
     Dates: start: 20040130, end: 20050512

REACTIONS (11)
  - Menstruation irregular [None]
  - Ovarian cyst [None]
  - Depression [None]
  - Medical device pain [None]
  - Weight increased [None]
  - Genital haemorrhage [None]
  - Anxiety [None]
  - Abdominal pain [None]
  - Embedded device [None]
  - Injury [None]
  - Emotional distress [None]

NARRATIVE: CASE EVENT DATE: 200505
